FAERS Safety Report 9072093 (Version 1)
Quarter: 2013Q1

REPORT INFORMATION
  Report Type: Report from Study
  Country: US (occurrence: US)
  Receive Date: 20130129
  Receipt Date: 20130129
  Transmission Date: 20140127
  Serious: No
  Sender: FDA-Public Use
  Company Number: US-ABBOTT-12P-163-0928241-00

PATIENT
  Age: 56 Year
  Sex: Female

DRUGS (3)
  1. HUMIRA 40 MG/0.8 ML PEN [Suspect]
     Indication: PSORIASIS
     Dates: start: 20120129, end: 20120403
  2. IBUPROFEN [Concomitant]
     Indication: MUSCULOSKELETAL DISCOMFORT
  3. TRIAMCINOLONE [Concomitant]
     Indication: PSORIASIS
     Dosage: 1 PERCENT DAILY

REACTIONS (5)
  - Insomnia [Unknown]
  - Drug ineffective [Not Recovered/Not Resolved]
  - Psoriasis [Unknown]
  - Psoriasis [Unknown]
  - Pain [Unknown]
